FAERS Safety Report 23322349 (Version 1)
Quarter: 2023Q4

REPORT INFORMATION
  Report Type: Spontaneous
  Country: US (occurrence: None)
  Receive Date: 20231220
  Receipt Date: 20231220
  Transmission Date: 20240110
  Serious: Yes (Hospitalization)
  Sender: FDA-Public Use
  Company Number: None

PATIENT
  Age: 64 Year
  Sex: Male

DRUGS (1)
  1. SPRAVATO [Suspect]
     Active Substance: ESKETAMINE
     Dosage: FREQUENCY : TWICE A WEEK;?
     Route: 042
     Dates: start: 20231023, end: 20231027

REACTIONS (1)
  - Depression [None]

NARRATIVE: CASE EVENT DATE: 20231023
